FAERS Safety Report 5364316-7 (Version None)
Quarter: 2007Q2

REPORT INFORMATION
  Report Type: 
  Country: None (occurrence: None)
  Receive Date: 20070620
  Receipt Date: 20070618
  Transmission Date: 20071010
  Serious: Yes (Hospitalization, Disabling)
  Sender: FDA-Public Use
  Company Number: US-MERCK-0704USA05923

PATIENT
  Age: 63 Year
  Sex: Male
  Weight: 77 kg

DRUGS (7)
  1. ZOCOR [Suspect]
     Indication: LIPIDS INCREASED
     Route: 048
     Dates: start: 20060806, end: 20060811
  2. INDERAL [Concomitant]
     Indication: MIGRAINE
     Route: 065
  3. LEXAPRO [Concomitant]
     Indication: DEPRESSION
     Route: 065
     Dates: start: 20070425
  4. ADVAIR DISKUS 100/50 [Concomitant]
     Indication: ASTHMA
     Route: 065
     Dates: start: 20070220
  5. ADVAIR DISKUS 100/50 [Concomitant]
     Indication: CHRONIC OBSTRUCTIVE PULMONARY DISEASE
     Route: 065
     Dates: start: 20070220
  6. SPIRIVA [Concomitant]
     Indication: ASTHMA
     Route: 065
     Dates: start: 20070220
  7. SPIRIVA [Concomitant]
     Indication: CHRONIC OBSTRUCTIVE PULMONARY DISEASE
     Route: 065
     Dates: start: 20070220

REACTIONS (6)
  - ANXIETY DISORDER [None]
  - DEPRESSION [None]
  - FATIGUE [None]
  - LETHARGY [None]
  - MYALGIA [None]
  - MYOPATHY TOXIC [None]
